FAERS Safety Report 8893705 (Version 1)
Quarter: 2012Q4

REPORT INFORMATION
  Report Type: 
  Country: IT (occurrence: IT)
  Receive Date: 20121108
  Receipt Date: 20121108
  Transmission Date: 20130627
  Serious: Yes (Other)
  Sender: FDA-Public Use
  Company Number: IT-BAYER-2012-106109

PATIENT
  Age: 69 Year
  Sex: Male

DRUGS (5)
  1. NEXAVAR [Suspect]
     Indication: CARCINOMA HEPATOCELLULAR
     Dosage: Daily dose 400 mg
     Route: 048
     Dates: start: 20120917, end: 20120924
  2. FUROSEMIDE [Concomitant]
     Dosage: Daily dose 25 mg
     Dates: start: 20120830, end: 20120925
  3. LACTULOSE [Concomitant]
     Dosage: Daily dose 2 DF
     Route: 048
     Dates: start: 20120830, end: 20120925
  4. PANTOPRAZOLE [Concomitant]
     Dosage: Daily dose 20 mg
     Route: 048
     Dates: start: 20120830, end: 20120925
  5. ROCALTROL [Concomitant]
     Dosage: Daily dose .25 mg
     Route: 048
     Dates: start: 20120830, end: 20120925

REACTIONS (3)
  - Hepatotoxicity [Recovering/Resolving]
  - Amylase increased [Recovering/Resolving]
  - Atrial fibrillation [Recovering/Resolving]
